FAERS Safety Report 20762379 (Version 1)
Quarter: 2022Q2

REPORT INFORMATION
  Report Type: Spontaneous
  Country: US (occurrence: US)
  Receive Date: 20220428
  Receipt Date: 20220428
  Transmission Date: 20220721
  Serious: No
  Sender: FDA-Public Use
  Company Number: US-NOVARTISTESTPH-NVSC2022US097949

PATIENT
  Sex: Female
  Weight: 75.296 kg

DRUGS (1)
  1. INFUVITE ADULT [Suspect]
     Active Substance: .ALPHA.-TOCOPHEROL ACETATE\ASCORBIC ACID\BIOTIN\CHOLECALCIFEROL\CYANOCOBALAMIN\DEXPANTHENOL\FOLIC AC
     Indication: Product used for unknown indication
     Dosage: SINGLE DOSE
     Route: 065

REACTIONS (4)
  - Nausea [Recovered/Resolved]
  - Dizziness [Recovered/Resolved]
  - Feeling hot [Recovered/Resolved]
  - Incorrect dose administered [Unknown]

NARRATIVE: CASE EVENT DATE: 20220421
